FAERS Safety Report 8302844-2 (Version None)
Quarter: 2012Q2

REPORT INFORMATION
  Report Type: 
  Country: None (occurrence: None)
  Receive Date: 20120420
  Receipt Date: 20120412
  Transmission Date: 20120825
  Serious: Yes (Hospitalization)
  Sender: FDA-Public Use
  Company Number: US-MPIJNJ-2011-05125

PATIENT
  Sex: Male

DRUGS (3)
  1. VELCADE [Suspect]
     Indication: MULTIPLE MYELOMA
     Dosage: 1.3 MG/M2, CYCLIC
     Route: 042
     Dates: start: 20110930
  2. CYCLOPHOSPHAMIDE [Suspect]
     Indication: MULTIPLE MYELOMA
     Dosage: 500 MG/M2, CYCLIC
  3. DEXAMETHASONE [Suspect]
     Indication: MULTIPLE MYELOMA
     Dosage: 40 MG, CYCLIC
     Route: 048

REACTIONS (7)
  - DECUBITUS ULCER [None]
  - URINARY RETENTION [None]
  - URINARY TRACT INFECTION [None]
  - HYPOXIA [None]
  - ELECTROLYTE IMBALANCE [None]
  - TACHYCARDIA [None]
  - HYPERGLYCAEMIA [None]
